FAERS Safety Report 20899663 (Version 7)
Quarter: 2022Q4

REPORT INFORMATION
  Report Type: Report from Study
  Country: CO (occurrence: CO)
  Receive Date: 20220601
  Receipt Date: 20221115
  Transmission Date: 20230113
  Serious: Yes (Other)
  Sender: FDA-Public Use
  Company Number: CO-BAYER-2021-204723

PATIENT
  Sex: Female

DRUGS (10)
  1. EYLEA [Suspect]
     Active Substance: AFLIBERCEPT
     Indication: Age-related macular degeneration
     Dosage: 2 MG, ONCE, RIGHT EYE, SOLUTION FOR INJECTION, 40 MG/ML
     Route: 031
     Dates: start: 20210304, end: 20210304
  2. EYLEA [Suspect]
     Active Substance: AFLIBERCEPT
     Indication: Age-related macular degeneration
     Dosage: 2MG, ONCE, RIGHT EYE, SOLUTION FOR INJECTION, 40 MG/ML
     Route: 031
     Dates: start: 20210411, end: 20210411
  3. EYLEA [Suspect]
     Active Substance: AFLIBERCEPT
     Dosage: 2MG, ONCE, RIGHT EYE, SOLUTION FOR INJECTION, 40 MG/ML
     Route: 031
     Dates: start: 20210505, end: 20210505
  4. EYLEA [Suspect]
     Active Substance: AFLIBERCEPT
     Dosage: 2MG, ONCE, RIGHT EYE, SOLUTION FOR INJECTION, 40 MG/ML
     Route: 031
     Dates: start: 20210811, end: 20210811
  5. EYLEA [Suspect]
     Active Substance: AFLIBERCEPT
     Dosage: 2MG, ONCE, RIGHT EYE, SOLUTION FOR INJECTION, 40 MG/ML
     Route: 031
     Dates: start: 20211104, end: 20211104
  6. EYLEA [Suspect]
     Active Substance: AFLIBERCEPT
     Dosage: 2MG, ONCE, RIGHT EYE, SOLUTION FOR INJECTION, 40 MG/ML
     Route: 031
     Dates: start: 20220329, end: 20220329
  7. EYLEA [Suspect]
     Active Substance: AFLIBERCEPT
     Dosage: 2MG, RIGHT EYE, SOLUTION FOR INJECTION, 40 MG/ML
     Route: 031
     Dates: start: 20220613, end: 20220613
  8. EYLEA [Suspect]
     Active Substance: AFLIBERCEPT
     Dosage: 2MG, RIGHT EYE, SOLUTION FOR INJECTION, 40 MG/ML
     Route: 031
     Dates: start: 20220711, end: 20220711
  9. EYLEA [Suspect]
     Active Substance: AFLIBERCEPT
     Dosage: 2 MG, RIGHT EYE; SOLUTION FOR INJECTION, 40 MG/ML
     Route: 031
     Dates: start: 20220822, end: 20220822
  10. EYLEA [Suspect]
     Active Substance: AFLIBERCEPT
     Dosage: 2 MG, RIGHT EYE; 10 INJECTIONS IN TOTAL, SOLUTION FOR INJECTION, 40 MG/ML
     Route: 031
     Dates: start: 20220926, end: 20220926

REACTIONS (9)
  - Blindness unilateral [Not Recovered/Not Resolved]
  - Inappropriate schedule of product administration [Not Recovered/Not Resolved]
  - Visual impairment [Not Recovered/Not Resolved]
  - Ocular discomfort [Recovered/Resolved]
  - Headache [Recovered/Resolved]
  - Eye irritation [Recovered/Resolved]
  - Visual impairment [Unknown]
  - Injection site pain [Not Recovered/Not Resolved]
  - Vision blurred [Unknown]

NARRATIVE: CASE EVENT DATE: 20210304
